FAERS Safety Report 25997491 (Version 1)
Quarter: 2025Q4

REPORT INFORMATION
  Report Type: Spontaneous
  Country: CN (occurrence: CN)
  Receive Date: 20251104
  Receipt Date: 20251104
  Transmission Date: 20260117
  Serious: Yes (Other)
  Sender: BEIGENE
  Company Number: CN-BEIGENE-BGN-2025-018586

PATIENT
  Age: 55 Year

DRUGS (5)
  1. BRUKINSA [Suspect]
     Active Substance: ZANUBRUTINIB
     Indication: Diffuse large B-cell lymphoma
     Dosage: 160 MILLIGRAM, BID (D1-14)
  2. DOXORUBICIN [Concomitant]
     Active Substance: DOXORUBICIN
     Indication: Diffuse large B-cell lymphoma
     Dosage: 60 MILLIGRAM ON DAY 1
  3. PACLITAXEL [Concomitant]
     Active Substance: PACLITAXEL
     Indication: Diffuse large B-cell lymphoma
     Dosage: 0.4 GRAM ON DAY 5
  4. DECITABINE [Concomitant]
     Active Substance: DECITABINE
     Indication: Diffuse large B-cell lymphoma
     Dosage: 10 MILLIGRAM (D1-5)
  5. LENALIDOMIDE [Concomitant]
     Active Substance: LENALIDOMIDE
     Indication: Diffuse large B-cell lymphoma
     Dosage: UNK

REACTIONS (3)
  - Myelosuppression [Recovering/Resolving]
  - Skin ulcer [Recovering/Resolving]
  - Purulence [Recovering/Resolving]
